FAERS Safety Report 25060721 (Version 1)
Quarter: 2025Q1

REPORT INFORMATION
  Report Type: Spontaneous
  Country: CN (occurrence: CN)
  Receive Date: 20250310
  Receipt Date: 20250310
  Transmission Date: 20250408
  Serious: Yes (Life-Threatening, Hospitalization, Other)
  Sender: PFIZER
  Company Number: CN-PFIZER INC-PV202500028235

PATIENT
  Age: 14 Year
  Sex: Male
  Weight: 54 kg

DRUGS (1)
  1. METHOTREXATE SODIUM [Suspect]
     Active Substance: METHOTREXATE SODIUM
     Indication: Chemotherapy
     Dosage: 14 G, 1X/DAY
     Route: 041
     Dates: start: 20250224, end: 20250224

REACTIONS (6)
  - Skin burning sensation [Recovering/Resolving]
  - Transaminases increased [Recovering/Resolving]
  - Tachypnoea [Recovering/Resolving]
  - Hypertonia [Recovering/Resolving]
  - Urine output decreased [Recovering/Resolving]
  - Toxicity to various agents [Recovering/Resolving]

NARRATIVE: CASE EVENT DATE: 20250201
